FAERS Safety Report 6894894-8 (Version None)
Quarter: 2010Q3

REPORT INFORMATION
  Report Type: 
  Country: None (occurrence: None)
  Receive Date: 20100802
  Receipt Date: 20100720
  Transmission Date: 20110219
  Serious: Yes (Other)
  Sender: FDA-Public Use
  Company Number: US-ROCHE-700807

PATIENT
  Sex: Female

DRUGS (3)
  1. HERCEPTIN [Suspect]
     Dosage: THERAPY ON AND OFF SINCE 2000. START OF THERAPY SINCE FALL OF 2007.
     Route: 042
     Dates: start: 20070101
  2. XELODA [Suspect]
     Dosage: THRAPY STAR: FALL OF 2007
     Route: 048
     Dates: start: 20070101, end: 20100101
  3. TYKERB [Suspect]
     Route: 065
     Dates: start: 20070101, end: 20100101

REACTIONS (4)
  - DIARRHOEA [None]
  - DISEASE PROGRESSION [None]
  - DRUG EFFECT DECREASED [None]
  - PALMAR-PLANTAR ERYTHRODYSAESTHESIA SYNDROME [None]
